FAERS Safety Report 4556588-3 (Version None)
Quarter: 2005Q1

REPORT INFORMATION
  Report Type: 
  Country: None (occurrence: None)
  Receive Date: 20050114
  Receipt Date: 20040929
  Transmission Date: 20050727
  Serious: Yes (Other)
  Sender: FDA-Public Use
  Company Number: 805#1#2004-00024

PATIENT
  Age: 2 Month
  Sex: Female

DRUGS (13)
  1. ALPROSTADIL [Suspect]
     Indication: HEART DISEASE CONGENITAL
     Dosage: 180 MCG INTRAVENOUS DRIP
     Route: 041
     Dates: start: 20040724, end: 20040928
  2. ALPROSTADIL [Suspect]
     Dosage: INTRAVENOUS DRIP
     Route: 041
     Dates: start: 20040602, end: 20040724
  3. ALPROSTADIL [Suspect]
     Dosage: INTRAVENOUS DRIP
     Route: 041
     Dates: start: 20040904, end: 20040904
  4. FUROSEMIDE [Concomitant]
  5. CEFAZOLIN SODIUM [Concomitant]
  6. CEFPIROME-SULFATE (CEFPIROME SULFATE) [Concomitant]
  7. PANIPENEM/BETAMIOPRON (BETAMIPRON, PANIPENEM) [Concomitant]
  8. SULAMETHOXAZOLE/TRIMETHOOPRIM (SULFAMETHOXAZOLE, TRIMETHOPRIM) [Concomitant]
  9. TEICOPLANIN (TEICOPLANIN) [Concomitant]
  10. CEFTAZIDIME SODIUM [Concomitant]
  11. ARBEKACIN-SULFATE (ARBEKACIN) [Concomitant]
  12. IMMUNOGLOBULIN (IMMUNOGLOBULIN HUMAN NORMAL) [Concomitant]
  13. SULBACTAM-SODIUM/CEFOPERAZONE-SODIUM (CEFOPERAZONE SODIUM, SULBACTAM S [Concomitant]

REACTIONS (9)
  - ALOPECIA [None]
  - BLOOD IRON DECREASED [None]
  - C-REACTIVE PROTEIN INCREASED [None]
  - GENERALISED OEDEMA [None]
  - HYPERTRICHOSIS [None]
  - HYPOXIA [None]
  - INFECTION [None]
  - PERIOSTITIS HYPERTROPHIC [None]
  - PYREXIA [None]
